FAERS Safety Report 9082796 (Version 2)
Quarter: 2013Q2

REPORT INFORMATION
  Report Type: Spontaneous
  Country: US (occurrence: US)
  Receive Date: 20130130
  Receipt Date: 20130425
  Transmission Date: 20140414
  Serious: Yes (Other)
  Sender: FDA-Public Use
  Company Number: PHEH2013US002549

PATIENT
  Age: 70 Year
  Sex: Female

DRUGS (18)
  1. GILENYA [Suspect]
     Indication: MULTIPLE SCLEROSIS
     Dosage: 0.5 MG, QD
     Route: 048
     Dates: start: 201103, end: 201301
  2. CLONAZEPAM [Concomitant]
     Dosage: 0.5 MG, BID
     Route: 048
  3. CYMBALTA [Concomitant]
     Dosage: 60 MG, BID
     Route: 048
  4. GABAPENTIN [Concomitant]
     Dosage: 300 MG, UNK
     Route: 048
  5. PROVIGIL [Concomitant]
     Dosage: 200 MG, BID
     Route: 048
  6. OCUVITE                            /01053801/ [Concomitant]
     Route: 048
  7. CALTRATE WITH VITAMIN D [Concomitant]
  8. CREON [Concomitant]
  9. NEXIUM//ESOMEPRAZOLE MAGNESIUM [Concomitant]
  10. TRICOR [Concomitant]
  11. LEVOXYL [Concomitant]
  12. MORPHINE [Concomitant]
  13. MULTIVITAMINS [Concomitant]
  14. OXYMORPHONE [Concomitant]
     Dosage: 30 MG, Q12H
  15. K-DUR [Concomitant]
  16. KLOR-CON [Concomitant]
  17. ZANAFLEX [Concomitant]
  18. DEMADEX [Concomitant]
     Route: 048

REACTIONS (9)
  - Retinal vein occlusion [Recovered/Resolved]
  - Eye haemorrhage [Unknown]
  - Macular oedema [Recovered/Resolved]
  - Retinal exudates [Unknown]
  - Blindness [Recovering/Resolving]
  - Ocular hyperaemia [Recovering/Resolving]
  - Photopsia [Unknown]
  - Vitreous floaters [Unknown]
  - Eye pain [Unknown]
